FAERS Safety Report 5657662-0 (Version None)
Quarter: 2008Q1

REPORT INFORMATION
  Report Type: 
  Country: None (occurrence: None)
  Receive Date: 20080310
  Receipt Date: 20080228
  Transmission Date: 20080703
  Serious: Yes (Hospitalization)
  Sender: FDA-Public Use
  Company Number: PHBS2008NZ02948

PATIENT
  Age: 40 Year
  Sex: Male

DRUGS (2)
  1. CARBAMAZEPINE [Suspect]
     Indication: EPILEPSY
  2. FLUCLOXACILLIN [Suspect]
     Indication: SKIN LACERATION
     Route: 048

REACTIONS (7)
  - ANGLE CLOSURE GLAUCOMA [None]
  - CORNEAL OEDEMA [None]
  - FALL [None]
  - INTRAOCULAR PRESSURE INCREASED [None]
  - PUPIL FIXED [None]
  - SKIN LACERATION [None]
  - VISUAL ACUITY REDUCED [None]
